FAERS Safety Report 4612766-6 (Version None)
Quarter: 2005Q1

REPORT INFORMATION
  Report Type: 
  Country: None (occurrence: None)
  Receive Date: 20050316
  Receipt Date: 20050304
  Transmission Date: 20050727
  Serious: Yes (Hospitalization)
  Sender: FDA-Public Use
  Company Number: 212889

PATIENT
  Age: 52 Year
  Sex: Female

DRUGS (3)
  1. AVASTIN [Suspect]
     Indication: PANCREATIC CARCINOMA
     Dosage: 15 MG/KG, INTRAVENOUS
     Route: 042
     Dates: start: 20050114
  2. CAPECITABINE (CAPACITABINE) [Suspect]
     Indication: PANCREATIC CARCINOMA
     Dosage: 650 MG/M2, INTRAVENOUS
     Route: 042
     Dates: start: 20050104
  3. GEMCITABINE (GHEMCITABINE HYDROCHLORIDE) [Suspect]
     Indication: PANCREATIC CARCINOMA
     Dosage: 1000 MG/M2, INTRAVNEOUS
     Route: 042
     Dates: start: 20050114

REACTIONS (6)
  - BLOOD ALKALINE PHOSPHATASE INCREASED [None]
  - CONDITION AGGRAVATED [None]
  - DEHYDRATION [None]
  - LIPASE INCREASED [None]
  - NAUSEA [None]
  - VOMITING [None]
